FAERS Safety Report 8247746-5 (Version None)
Quarter: 2012Q1

REPORT INFORMATION
  Report Type: 
  Country: None (occurrence: None)
  Receive Date: 20120330
  Receipt Date: 20120328
  Transmission Date: 20120608
  Serious: Yes (Hospitalization)
  Sender: FDA-Public Use
  Company Number: US-GLAXOSMITHKLINE-B0736600A

PATIENT
  Age: 73 Year
  Sex: Female
  Weight: 70 kg

DRUGS (2)
  1. LAPATINIB [Suspect]
     Indication: BREAST CANCER
     Dosage: 1250MG PER DAY
     Route: 048
     Dates: start: 20110510, end: 20110525
  2. CAPECITABINE [Suspect]
     Indication: BREAST CANCER
     Dosage: 1800MG TWICE PER DAY
     Route: 048
     Dates: start: 20110510, end: 20110524

REACTIONS (1)
  - INTESTINAL OBSTRUCTION [None]
